FAERS Safety Report 19047452 (Version 1)
Quarter: 2021Q1

REPORT INFORMATION
  Report Type: Spontaneous
  Country: DE (occurrence: DE)
  Receive Date: 20210323
  Receipt Date: 20210323
  Transmission Date: 20210420
  Serious: Yes (Hospitalization)
  Sender: FDA-Public Use
  Company Number: NVSC2021DE059740

PATIENT
  Sex: Male

DRUGS (1)
  1. LEVETIRACETAM. [Suspect]
     Active Substance: LEVETIRACETAM
     Indication: EPILEPSY
     Dosage: 3.2 ML, QD (2 SEPARATED DOSES)
     Route: 048
     Dates: start: 201910

REACTIONS (2)
  - Status epilepticus [Unknown]
  - Febrile convulsion [Unknown]

NARRATIVE: CASE EVENT DATE: 20200621
